FAERS Safety Report 8826850 (Version 1)
Quarter: 2012Q4

REPORT INFORMATION
  Report Type: 
  Country: BR (occurrence: BR)
  Receive Date: 20121008
  Receipt Date: 20121008
  Transmission Date: 20130627
  Serious: Yes (Other)
  Sender: FDA-Public Use
  Company Number: BR-AMGEN-BRASP2012062813

PATIENT
  Age: 57 Year
  Sex: Female
  Weight: 73 kg

DRUGS (9)
  1. ENBREL [Suspect]
     Indication: PSORIATIC ARTHROPATHY
     Dosage: 25 mg, 2x/week
     Route: 058
     Dates: start: 20070904, end: 20070922
  2. ENBREL [Suspect]
     Dosage: 50 mg, once weekly
     Route: 058
     Dates: end: 201207
  3. ENBREL [Suspect]
     Dosage: 50 mg, once weekly
     Route: 058
     Dates: end: 201208
  4. ENALAPRIL [Concomitant]
     Dosage: one tablet (10mg) daily
  5. ESTRADIOL [Concomitant]
     Dosage: UNK UNK, UNK
  6. NIMESULIDE [Concomitant]
     Dosage: UNK UNK, UNK
  7. PREDNISONE [Concomitant]
     Dosage: UNK UNK, UNK
  8. METFORMIN [Concomitant]
     Dosage: one tablet (850mg) daily
  9. RIVOTRIL [Concomitant]
     Indication: RELAXATION THERAPY
     Dosage: eventually, when get tension

REACTIONS (4)
  - Anal haemorrhage [Not Recovered/Not Resolved]
  - Nasopharyngitis [Unknown]
  - Injection site pain [Unknown]
  - Injection site pruritus [Unknown]
